FAERS Safety Report 14676352 (Version 1)
Quarter: 2018Q1

REPORT INFORMATION
  Report Type: Spontaneous
  Country: US (occurrence: US)
  Receive Date: 20180323
  Receipt Date: 20180323
  Transmission Date: 20180509
  Serious: Yes (Disabling)
  Sender: FDA-Public Use
  Company Number: None

PATIENT
  Age: 60 Year
  Sex: Female
  Weight: 48.99 kg

DRUGS (1)
  1. NITROFURANTOIN MONOHYDRATE MACROCRYSTALS [Suspect]
     Active Substance: NITROFURANTOIN\NITROFURANTOIN MONOHYDRATE
     Indication: CYSTITIS
     Route: 048
     Dates: start: 20170711, end: 20170717

REACTIONS (13)
  - Feeling abnormal [None]
  - Fear [None]
  - Renal disorder [None]
  - Gastrointestinal disorder [None]
  - Tinnitus [None]
  - Dyspepsia [None]
  - Dry eye [None]
  - Paraesthesia [None]
  - Headache [None]
  - Anxiety [None]
  - Product quality issue [None]
  - Asthenia [None]
  - Genital burning sensation [None]

NARRATIVE: CASE EVENT DATE: 20170715
